FAERS Safety Report 5464230-2 (Version None)
Quarter: 2007Q3

REPORT INFORMATION
  Report Type: 
  Country: None (occurrence: None)
  Receive Date: 20070921
  Receipt Date: 20070911
  Transmission Date: 20080115
  Serious: Yes (Disabling)
  Sender: FDA-Public Use
  Company Number: US-ELI_LILLY_AND_COMPANY-US200708005997

PATIENT
  Age: 80 Year
  Sex: Female

DRUGS (5)
  1. HUMALOG [Suspect]
     Dates: start: 19970101
  2. HUMALOG [Suspect]
     Dates: start: 19970101
  3. LANTUS [Concomitant]
     Dates: start: 19970101
  4. ANTIHYPERTENSIVE AGENT [Concomitant]
     Indication: HYPERTENSION
  5. WATER PILLS [Concomitant]

REACTIONS (1)
  - ISCHAEMIC STROKE [None]
